FAERS Safety Report 7969609-2 (Version None)
Quarter: 2011Q4

REPORT INFORMATION
  Report Type: 
  Country: None (occurrence: None)
  Receive Date: 20111212
  Receipt Date: 20111206
  Transmission Date: 20120403
  Serious: Yes (Hospitalization)
  Sender: FDA-Public Use
  Company Number: DK-PFIZER INC-2011299270

PATIENT
  Age: 61 Year
  Sex: Male
  Weight: 93 kg

DRUGS (1)
  1. SUNITINIB MALATE [Suspect]
     Indication: METASTATIC RENAL CELL CARCINOMA
     Dosage: 50 MG, 1X/DAY IN 24 DAYS THEN PAUSE IN 18 DAYS
     Dates: start: 20070131, end: 20090218

REACTIONS (2)
  - TRANSIENT ISCHAEMIC ATTACK [None]
  - NEUROPATHY PERIPHERAL [None]
